FAERS Safety Report 15116603 (Version 1)
Quarter: 2018Q3

REPORT INFORMATION
  Report Type: Spontaneous
  Country: FR (occurrence: FR)
  Receive Date: 20180706
  Receipt Date: 20180706
  Transmission Date: 20181010
  Serious: Yes (Hospitalization)
  Sender: FDA-Public Use
  Company Number: FR-TEVA-2018-FR-922236

PATIENT
  Age: 77 Year
  Sex: Female

DRUGS (16)
  1. ACIDE FOLIQUE [Concomitant]
     Active Substance: FOLIC ACID
     Route: 048
  2. VENLAFAXINE [Suspect]
     Active Substance: VENLAFAXINE HYDROCHLORIDE
     Indication: PRODUCT USED FOR UNKNOWN INDICATION
     Route: 048
  3. XYZALL 5 MG, COMPRIM? PELLICUL? [Concomitant]
     Route: 048
  4. LAROXYL 40 MG/ML, SOLUTION BUVABLE [Suspect]
     Active Substance: AMITRIPTYLINE HYDROCHLORIDE
     Indication: PRODUCT USED FOR UNKNOWN INDICATION
     Route: 048
  5. PANTOPRAZOLE [Concomitant]
     Active Substance: PANTOPRAZOLE
     Route: 048
  6. SPIRIVA [Concomitant]
     Active Substance: TIOTROPIUM BROMIDE MONOHYDRATE
     Route: 055
  7. UVEDOSE [Concomitant]
     Active Substance: CHOLECALCIFEROL
     Route: 048
  8. ASPIRINE [Concomitant]
     Active Substance: ASPIRIN
     Route: 048
  9. TELMISARTAN. [Suspect]
     Active Substance: TELMISARTAN
     Indication: ESSENTIAL HYPERTENSION
     Route: 048
  10. SERETIDE [Concomitant]
     Active Substance: FLUTICASONE PROPIONATE\SALMETEROL XINAFOATE
     Route: 055
  11. DOLIPRANE 500 MG, COMPRIM? [Concomitant]
     Route: 048
  12. EZETROL 10 MG, COMPRIM? [Concomitant]
     Route: 048
  13. LEVOTHYROX 175 MICROGRAMMES, COMPRIM? S?CABLE [Suspect]
     Active Substance: LEVOTHYROXINE SODIUM
     Route: 065
  14. SERESTA 10 MG, COMPRIM? [Suspect]
     Active Substance: OXAZEPAM
     Indication: PRODUCT USED FOR UNKNOWN INDICATION
     Route: 048
  15. OXYNORMORO 5 MG, COMPRIM? ORODISPERSIBLE [Suspect]
     Active Substance: OXYCODONE HYDROCHLORIDE
     Indication: BACK PAIN
     Route: 048
  16. FLECAINE 100 MG, COMPRIM? S?CABLE [Concomitant]
     Active Substance: FLECAINIDE ACETATE
     Route: 048

REACTIONS (1)
  - Fall [Recovered/Resolved]

NARRATIVE: CASE EVENT DATE: 20180319
